FAERS Safety Report 25548675 (Version 1)
Quarter: 2025Q3

REPORT INFORMATION
  Report Type: Spontaneous
  Country: US (occurrence: US)
  Receive Date: 20250714
  Receipt Date: 20250714
  Transmission Date: 20251021
  Serious: Yes (Other)
  Sender: CHEPLAPHARM
  Company Number: US-CHEPLA-2025008513

PATIENT
  Sex: Female

DRUGS (4)
  1. QUETIAPINE [Suspect]
     Active Substance: QUETIAPINE
     Dates: end: 20180716
  2. QUETIAPINE [Suspect]
     Active Substance: QUETIAPINE
     Dates: end: 20180716
  3. QUETIAPINE [Suspect]
     Active Substance: QUETIAPINE
  4. XANAX [Suspect]
     Active Substance: ALPRAZOLAM

REACTIONS (19)
  - Abortion spontaneous [Unknown]
  - Serotonin syndrome [Unknown]
  - Drug dependence [Unknown]
  - Suicidal ideation [Unknown]
  - Menopause [Unknown]
  - Oligomenorrhoea [Unknown]
  - Menstrual clots [Unknown]
  - Reproductive tract disorder [Unknown]
  - Menstrual disorder [Unknown]
  - Memory impairment [Unknown]
  - Drug level increased [Unknown]
  - Libido increased [Unknown]
  - Anxiety [Unknown]
  - Anger [Unknown]
  - Bedridden [Unknown]
  - Educational problem [Unknown]
  - Maternal exposure during pregnancy [Unknown]
  - Off label use [Recovered/Resolved]
  - Product label issue [Unknown]
